FAERS Safety Report 4262062-4 (Version None)
Quarter: 2004Q1

REPORT INFORMATION
  Report Type: 
  Country: None (occurrence: None)
  Receive Date: 20040102
  Receipt Date: 20031216
  Transmission Date: 20041129
  Serious: Yes (Disabling, Other)
  Sender: FDA-Public Use
  Company Number: JP-GLAXOSMITHKLINE-B0317901A

PATIENT
  Age: 65 Year
  Sex: Male

DRUGS (5)
  1. VALTREX [Suspect]
     Indication: HERPES ZOSTER
     Route: 048
     Dates: start: 20031211, end: 20031212
  2. PRECIPITATED CALCIUM CARBONATE [Concomitant]
     Indication: HYPERPHOSPHATASAEMIA
     Route: 048
     Dates: start: 20030102
  3. DOXAZOSIN MESYLATE [Concomitant]
     Indication: HYPERTENSION
     Dosage: 4MG PER DAY
     Route: 048
     Dates: start: 20030102
  4. NIFEDIPINE [Concomitant]
     Indication: HYPERTENSION
     Dosage: 40MG PER DAY
     Route: 048
     Dates: start: 20030501
  5. NICORANDIL [Concomitant]
     Indication: ARRHYTHMIA
     Dosage: 20MG PER DAY
     Route: 048
     Dates: start: 20030501

REACTIONS (4)
  - FEELING ABNORMAL [None]
  - HEMIPLEGIA [None]
  - PARESIS [None]
  - SPEECH DISORDER [None]
